FAERS Safety Report 17151910 (Version 1)
Quarter: 2019Q4

REPORT INFORMATION
  Report Type: Spontaneous
  Country: AT (occurrence: AT)
  Receive Date: 20191213
  Receipt Date: 20191213
  Transmission Date: 20200122
  Serious: Yes (Death)
  Sender: FDA-Public Use
  Company Number: AT-MYLANLABS-2019M1122347

PATIENT
  Age: 60 Year
  Sex: Female
  Weight: 80 kg

DRUGS (3)
  1. DICLOBENE [Suspect]
     Active Substance: DICLOFENAC SODIUM
     Indication: ABDOMINAL PAIN
     Dosage: 2 X 75 MG I.V.
     Route: 042
     Dates: start: 20190719, end: 20190721
  2. SCABIORAL [Suspect]
     Active Substance: IVERMECTIN
     Indication: ACARODERMATITIS
     Dosage: 12 MILLIGRAM, ONCE (4 ST)
     Route: 048
     Dates: start: 20190719, end: 20190719
  3. MONTELUKAST [Suspect]
     Active Substance: MONTELUKAST SODIUM
     Indication: ASTHMA
     Dosage: 5 MG 1X, LAUFEND
     Route: 048

REACTIONS (2)
  - Hepatotoxicity [Fatal]
  - Acute hepatic failure [Fatal]

NARRATIVE: CASE EVENT DATE: 20190721
